FAERS Safety Report 6881965-5 (Version None)
Quarter: 2010Q3

REPORT INFORMATION
  Report Type: 
  Country: None (occurrence: None)
  Receive Date: 20100727
  Receipt Date: 20100302
  Transmission Date: 20110219
  Serious: No
  Sender: FDA-Public Use
  Company Number: US-MYLANLABS-2010S1003479

PATIENT
  Age: 6 Decade
  Sex: Female

DRUGS (1)
  1. BUSPIRONE HCL [Suspect]
     Indication: ANXIETY
     Route: 048
     Dates: start: 20100224, end: 20100226

REACTIONS (6)
  - DRY MOUTH [None]
  - EYE SWELLING [None]
  - FEELING JITTERY [None]
  - OEDEMA PERIPHERAL [None]
  - PALPITATIONS [None]
  - THIRST [None]
